FAERS Safety Report 5913577-1 (Version None)
Quarter: 2008Q4

REPORT INFORMATION
  Report Type: 
  Country: None (occurrence: None)
  Receive Date: 20081007
  Receipt Date: 20080924
  Transmission Date: 20090506
  Serious: Yes (Other)
  Sender: FDA-Public Use
  Company Number: IMP_03893_2008

PATIENT
  Age: 49 Year
  Sex: Male

DRUGS (1)
  1. BUPROPION HCL [Suspect]
     Indication: SMOKING CESSATION THERAPY
     Dosage: 300 MG QD

REACTIONS (2)
  - MUSCULOSKELETAL STIFFNESS [None]
  - PARKINSON'S DISEASE [None]
